FAERS Safety Report 9473202 (Version 1)
Quarter: 2013Q3

REPORT INFORMATION
  Report Type: Spontaneous
  Country: US (occurrence: US)
  Receive Date: 20130823
  Receipt Date: 20130823
  Transmission Date: 20140515
  Serious: No
  Sender: FDA-Public Use
  Company Number: US-BRISTOL-MYERS SQUIBB COMPANY-18765636

PATIENT
  Age: 52 Year
  Sex: Male
  Weight: 104.31 kg

DRUGS (5)
  1. SPRYCEL (CML) TABS 100 MG [Suspect]
     Indication: CHRONIC MYELOID LEUKAEMIA
     Dosage: TABS
     Route: 048
     Dates: start: 20130305
  2. ALLOPURINOL [Concomitant]
  3. CARVEDILOL [Concomitant]
  4. PRAVASTATIN SODIUM [Concomitant]
  5. RAMIPRIL [Concomitant]

REACTIONS (2)
  - Epistaxis [Unknown]
  - Abdominal distension [Recovering/Resolving]
